FAERS Safety Report 9677156 (Version 2)
Quarter: 2013Q4

REPORT INFORMATION
  Report Type: Spontaneous
  Country: US (occurrence: US)
  Receive Date: 20131108
  Receipt Date: 20131121
  Transmission Date: 20140711
  Serious: Yes (Death)
  Sender: FDA-Public Use
  Company Number: US-BRISTOL-MYERS SQUIBB COMPANY-19721877

PATIENT
  Sex: Male

DRUGS (1)
  1. NULOJIX [Suspect]
     Indication: RENAL TRANSPLANT
     Dosage: LAST ADM DATE:16SEP13
     Route: 042
     Dates: start: 20120905

REACTIONS (1)
  - Cardiac arrest [Fatal]
